FAERS Safety Report 23485638 (Version 1)
Quarter: 2024Q1

REPORT INFORMATION
  Report Type: Spontaneous
  Country: RU (occurrence: RU)
  Receive Date: 20240206
  Receipt Date: 20240206
  Transmission Date: 20240410
  Serious: Yes (Hospitalization)
  Sender: FDA-Public Use
  Company Number: RU-BAYER-2024A016489

PATIENT
  Sex: Female

DRUGS (1)
  1. DESLORATADINE [Suspect]
     Active Substance: DESLORATADINE
     Indication: Urticaria
     Dosage: 5 MG, QD

REACTIONS (4)
  - Bronchospasm [Recovering/Resolving]
  - Discomfort [Recovering/Resolving]
  - Dysphagia [Recovering/Resolving]
  - Skin disorder [Recovering/Resolving]
